FAERS Safety Report 8010253-9 (Version None)
Quarter: 2011Q4

REPORT INFORMATION
  Report Type: 
  Country: None (occurrence: None)
  Receive Date: 20111221
  Receipt Date: 20111213
  Transmission Date: 20120403
  Serious: Yes (Other)
  Sender: FDA-Public Use
  Company Number: 2010FR0043

PATIENT
  Age: 21 Year
  Sex: Male

DRUGS (3)
  1. VITAMIN K TAB [Concomitant]
  2. VITAMIN D [Concomitant]
  3. ORFADIN [Suspect]
     Indication: TYROSINAEMIA
     Dosage: 80 MG (40 MG, 2 IN 1 D) ORAL
     Route: 048
     Dates: start: 19970506

REACTIONS (5)
  - HEPATIC NEOPLASM MALIGNANT [None]
  - HAEMORRHAGE [None]
  - SUCCINYLACETONE INCREASED [None]
  - TREATMENT NONCOMPLIANCE [None]
  - AMINO ACID LEVEL INCREASED [None]
